FAERS Safety Report 5268113-2 (Version None)
Quarter: 2007Q1

REPORT INFORMATION
  Report Type: 
  Country: None (occurrence: None)
  Receive Date: 20070316
  Receipt Date: 20070316
  Transmission Date: 20070707
  Serious: Yes (Other)
  Sender: FDA-Public Use
  Company Number: None

PATIENT
  Age: 12 Year
  Sex: Male
  Weight: 43.0917 kg

DRUGS (3)
  1. TAMIFLU [Suspect]
     Indication: INFLUENZA
     Dosage: 75MG Q12H PO
     Route: 048
     Dates: start: 20070310, end: 20070312
  2. IBUPROFEN [Concomitant]
  3. LORATADINE [Concomitant]

REACTIONS (2)
  - PETECHIAE [None]
  - RASH MACULO-PAPULAR [None]
